FAERS Safety Report 5191422-2 (Version None)
Quarter: 2006Q4

REPORT INFORMATION
  Report Type: 
  Country: None (occurrence: None)
  Receive Date: 20061226
  Receipt Date: 20060925
  Transmission Date: 20070319
  Serious: Yes (Other)
  Sender: FDA-Public Use
  Company Number: GBWYE028526SEP06

PATIENT
  Sex: Female

DRUGS (14)
  1. ENBREL [Suspect]
     Indication: DRUG USE FOR UNKNOWN INDICATION
     Route: 058
     Dates: start: 20040722, end: 20061009
  2. LEVOTHYROXINE SODIUM [Concomitant]
     Dosage: 200 MG EVERY
     Route: 048
  3. SIMVASTATIN [Concomitant]
     Route: 048
  4. CALCICHEW [Concomitant]
     Dosage: 2 TABLETS DAILY
     Route: 048
  5. PHENYTOIN [Concomitant]
     Route: 048
  6. ELOCON [Concomitant]
     Dosage: UNKNOWN
     Route: 061
  7. DILTIAZEM HCL [Concomitant]
     Route: 048
  8. LAMOTRIGINE [Concomitant]
     Route: 048
  9. FUROSEMIDE [Concomitant]
     Route: 048
  10. ASPIRIN [Concomitant]
     Route: 048
  11. CO-PROXAMOL [Concomitant]
     Dosage: 1 G EVERY 1 PRN
     Route: 048
  12. DICLOFENAC SODIUM [Concomitant]
     Route: 048
  13. METHOTREXATE [Concomitant]
     Dosage: UNKNOWN
     Route: 065
  14. ENALAPRIL MALEATE [Concomitant]
     Route: 048

REACTIONS (3)
  - ESCHERICHIA URINARY TRACT INFECTION [None]
  - PHLEBOLITH [None]
  - URINE KETONE BODY PRESENT [None]
